FAERS Safety Report 22201308 (Version 1)
Quarter: 2023Q2

REPORT INFORMATION
  Report Type: Spontaneous
  Country: US (occurrence: None)
  Receive Date: 20230411
  Receipt Date: 20230411
  Transmission Date: 20230722
  Serious: Yes (Death)
  Sender: FDA-Public Use
  Company Number: None

PATIENT
  Age: 75 Year
  Sex: Male
  Weight: 107.1 kg

DRUGS (7)
  1. SULFAMETHOXAZOLE\TRIMETHOPRIM [Suspect]
     Active Substance: SULFAMETHOXAZOLE\TRIMETHOPRIM
     Indication: Skin injury
     Dosage: 1 TABLET TWICE A DAY ORAL
     Route: 048
     Dates: start: 20221202, end: 20221207
  2. Simvastatin 40 mg daily [Concomitant]
  3. Lisinopril 40 mg daily [Concomitant]
  4. Amlodipine 5 mg daily [Concomitant]
  5. Multivitamin daily [Concomitant]
  6. 81 mg Aspiring daily [Concomitant]
  7. SULFAMETHOXAZOLE\TRIMETHOPRIM [Suspect]
     Active Substance: SULFAMETHOXAZOLE\TRIMETHOPRIM
     Indication: Infection

REACTIONS (2)
  - Disorientation [None]
  - Stevens-Johnson syndrome [None]

NARRATIVE: CASE EVENT DATE: 20221215
